FAERS Safety Report 4484564-8 (Version None)
Quarter: 2004Q3

REPORT INFORMATION
  Report Type: 
  Country: None (occurrence: None)
  Receive Date: 20040921
  Receipt Date: 20031212
  Transmission Date: 20050211
  Serious: Yes (Hospitalization)
  Sender: FDA-Public Use
  Company Number: 163-20785-03120373

PATIENT
  Age: 59 Year
  Sex: Male

DRUGS (13)
  1. THALOMID [Suspect]
     Indication: GLIOBLASTOMA MULTIFORME
     Dosage: 400 MG, DAILY, ORAL
     Route: 048
     Dates: start: 20031015
  2. TOPOTECAN (TOPOTECAN) [Suspect]
     Indication: GLIOBLASTOMA MULTIFORME
     Dosage: INTRAVENOUS
     Route: 042
     Dates: start: 20031015
  3. VALPROIC ACID [Suspect]
     Indication: CONVULSION
  4. AMARYL (GLIMEPIRIDE) (TABLETS) [Concomitant]
  5. DECADRON [Concomitant]
  6. OXANDRIN [Concomitant]
  7. ZOLOFT [Concomitant]
  8. CENTRUM (CENTRUM) [Concomitant]
  9. NORCO(VICODIN) [Concomitant]
  10. PEPCID [Concomitant]
  11. VITAMIN B (VITAMIN B) [Concomitant]
  12. SENNA (SENNA) [Concomitant]
  13. VICADENT [Concomitant]

REACTIONS (4)
  - GRAND MAL CONVULSION [None]
  - LABORATORY TEST ABNORMAL [None]
  - NEUTROPENIA [None]
  - PLATELET COUNT DECREASED [None]
